FAERS Safety Report 4459398-0 (Version None)
Quarter: 2004Q3

REPORT INFORMATION
  Report Type: 
  Country: None (occurrence: None)
  Receive Date: 20040927
  Receipt Date: 20040521
  Transmission Date: 20050211
  Serious: Yes (Death, Disabling)
  Sender: FDA-Public Use
  Company Number: CA-GLAXOSMITHKLINE-A0512187A

PATIENT
  Age: 61 Year
  Sex: Female
  Weight: 43 kg

DRUGS (1)
  1. NAVELBINE [Suspect]
     Dosage: 30MGM2 SEE DOSAGE TEXT
     Route: 042
     Dates: start: 20040202, end: 20040506

REACTIONS (4)
  - COMMUNICATION DISORDER [None]
  - DYSPHAGIA [None]
  - METASTASIS [None]
  - VOCAL CORD PARALYSIS [None]
